FAERS Safety Report 24759432 (Version 1)
Quarter: 2024Q4

REPORT INFORMATION
  Report Type: Report from Study
  Country: IT (occurrence: IT)
  Receive Date: 20241220
  Receipt Date: 20241220
  Transmission Date: 20250114
  Serious: Yes (Other)
  Sender: PAREXEL
  Company Number: IT-STEMLINE THERAPEUTICS B.V.-2024-STML-IT006755

PATIENT

DRUGS (1)
  1. ELACESTRANT [Suspect]
     Active Substance: ELACESTRANT
     Indication: Breast cancer
     Dosage: 345 MG, DAILY (1 CP/DIE)
     Route: 048
     Dates: start: 20240919, end: 20241211

REACTIONS (2)
  - Cholestasis [Not Recovered/Not Resolved]
  - Transaminases abnormal [Not Recovered/Not Resolved]

NARRATIVE: CASE EVENT DATE: 20241211
